FAERS Safety Report 20760755 (Version 1)
Quarter: 2022Q2

REPORT INFORMATION
  Report Type: Spontaneous
  Country: US (occurrence: US)
  Receive Date: 20220428
  Receipt Date: 20220428
  Transmission Date: 20220721
  Serious: Yes (Other)
  Sender: FDA-Public Use
  Company Number: US-SA-SAC20220426002331

PATIENT
  Age: 60 Year
  Sex: Female

DRUGS (1)
  1. ZANTAC [Suspect]
     Active Substance: RANITIDINE HYDROCHLORIDE
     Indication: Gastrooesophageal reflux disease
     Dosage: 150 MG, QD
     Dates: start: 201101, end: 201701

REACTIONS (3)
  - Gastrointestinal carcinoma [Not Recovered/Not Resolved]
  - Gastric cancer stage IV [Unknown]
  - Small intestine carcinoma stage IV [Not Recovered/Not Resolved]

NARRATIVE: CASE EVENT DATE: 20181001
